FAERS Safety Report 6742553-4 (Version None)
Quarter: 2010Q2

REPORT INFORMATION
  Report Type: 
  Country: None (occurrence: None)
  Receive Date: 20100524
  Receipt Date: 20100420
  Transmission Date: 20101027
  Serious: No
  Sender: FDA-Public Use
  Company Number: ACO_00727_2010

PATIENT
  Sex: Female
  Weight: 63.5036 kg

DRUGS (8)
  1. AMPYRA [Suspect]
     Indication: GAIT SPASTIC
     Dosage: (10 MG BID ORAL)
     Route: 048
     Dates: start: 20100329, end: 20100419
  2. AMPYRA [Suspect]
     Indication: MULTIPLE SCLEROSIS
     Dosage: (10 MG BID ORAL)
     Route: 048
     Dates: start: 20100329, end: 20100419
  3. LISINOPRIL AND HYDROCHLOROTHIAZIDE [Concomitant]
  4. LORATADINE [Concomitant]
  5. COPAXONE [Concomitant]
  6. FISH OIL [Concomitant]
  7. ASPIRIN [Concomitant]
  8. MULTI-VITAMINS [Concomitant]

REACTIONS (1)
  - FEELING JITTERY [None]
